FAERS Safety Report 24576605 (Version 4)
Quarter: 2025Q1

REPORT INFORMATION
  Report Type: Report from Study
  Country: AR (occurrence: AR)
  Receive Date: 20241104
  Receipt Date: 20250129
  Transmission Date: 20250409
  Serious: Yes (Life-Threatening, Other)
  Sender: NOVARTIS
  Company Number: AR-002147023-NVSC2024AR212603

PATIENT
  Age: 79 Year
  Sex: Female

DRUGS (9)
  1. KISQALI [Suspect]
     Active Substance: RIBOCICLIB
     Indication: Breast cancer metastatic
     Route: 048
  2. KISQALI [Suspect]
     Active Substance: RIBOCICLIB
     Dosage: 3 DOSAGE FORM, QD (200 MG) MID MORNING
     Route: 048
     Dates: start: 20240930
  3. KISQALI [Suspect]
     Active Substance: RIBOCICLIB
     Route: 048
  4. KISQALI [Suspect]
     Active Substance: RIBOCICLIB
     Route: 048
  5. LOSARTAN [Concomitant]
     Active Substance: LOSARTAN
     Indication: Hypertension
     Dosage: 2 DOSAGE FORM, BID, 50 MG, TABLET, 1 IN THE MORNING AND 1 AT NIGHT
     Route: 065
  6. LETROZOLE [Concomitant]
     Active Substance: LETROZOLE
     Indication: Product used for unknown indication
     Route: 065
  7. DIOSMIN [Concomitant]
     Active Substance: DIOSMIN
     Indication: Product used for unknown indication
     Route: 065
  8. OMEPRAZOLE [Concomitant]
     Active Substance: OMEPRAZOLE
     Indication: Product used for unknown indication
     Route: 065
  9. BLASTOP [Concomitant]
     Indication: Product used for unknown indication
     Route: 065

REACTIONS (19)
  - Platelet count abnormal [Recovered/Resolved]
  - Cough [Recovering/Resolving]
  - Pyrexia [Recovering/Resolving]
  - Peripheral swelling [Recovering/Resolving]
  - Feeling hot [Recovering/Resolving]
  - Skin exfoliation [Recovering/Resolving]
  - Lip exfoliation [Recovering/Resolving]
  - Decreased appetite [Recovering/Resolving]
  - Alopecia [Recovering/Resolving]
  - Sleep deficit [Recovering/Resolving]
  - Eye swelling [Recovering/Resolving]
  - Night sweats [Recovering/Resolving]
  - Toxicity to various agents [Recovering/Resolving]
  - Platelet count decreased [Recovered/Resolved]
  - White blood cell count abnormal [Unknown]
  - Anaemia [Unknown]
  - Platelet count decreased [Recovered/Resolved]
  - Fatigue [Unknown]
  - Somnolence [Unknown]

NARRATIVE: CASE EVENT DATE: 20241021
